FAERS Safety Report 19897011 (Version 1)
Quarter: 2021Q3

REPORT INFORMATION
  Report Type: Report from Study
  Country: JP (occurrence: JP)
  Receive Date: 20210930
  Receipt Date: 20210930
  Transmission Date: 20211014
  Serious: Yes (Other)
  Sender: FDA-Public Use
  Company Number: JP-TAKEDA-2021TJP095154

PATIENT
  Age: 23 Year
  Sex: Female
  Weight: 53 kg

DRUGS (9)
  1. HEPARINOID [Concomitant]
     Active Substance: CHONDROITIN SULFATE (BOVINE)
     Indication: DERMATITIS ATOPIC
     Dosage: UNK
     Route: 062
     Dates: start: 20210411
  2. VORTIOXETINE. [Suspect]
     Active Substance: VORTIOXETINE
     Indication: MAJOR DEPRESSION
     Dosage: 10 MILLIGRAM, QD
     Route: 065
     Dates: start: 20210824
  3. SULPIRIDE [Concomitant]
     Active Substance: SULPIRIDE
     Indication: MAJOR DEPRESSION
     Dosage: 50 MILLIGRAM, TID
     Route: 048
     Dates: start: 20210728, end: 20210823
  4. BIOFERMIN [Concomitant]
     Active Substance: DIETARY SUPPLEMENT\PROBIOTICS
     Indication: IRRITABLE BOWEL SYNDROME
     Dosage: 12 MILLIGRAM, TID
     Route: 048
     Dates: start: 20210804
  5. SAHNE [Concomitant]
     Indication: DERMATITIS ATOPIC
     Dosage: UNK
     Route: 062
     Dates: start: 20210411
  6. ETHYL LOFLAZEPATE [Concomitant]
     Active Substance: ETHYL LOFLAZEPATE
     Indication: MAJOR DEPRESSION
     Dosage: 1 MILLIGRAM, QD
     Route: 048
     Dates: start: 20210728
  7. SALEX [Concomitant]
     Active Substance: SALICYLIC ACID
     Indication: DERMATITIS ATOPIC
     Dosage: UNK
     Route: 062
     Dates: start: 20210411
  8. TACROLIMUS MONOHYDRATE [Concomitant]
     Active Substance: TACROLIMUS
     Indication: DERMATITIS ATOPIC
     Dosage: UNK
     Route: 062
     Dates: start: 20210411
  9. ZEBIAX [Concomitant]
     Indication: ACNE
     Dosage: UNK
     Route: 062
     Dates: start: 20210717

REACTIONS (2)
  - Candida infection [Unknown]
  - Genital haemorrhage [Unknown]

NARRATIVE: CASE EVENT DATE: 20210915
